FAERS Safety Report 5498433-8 (Version None)
Quarter: 2007Q4

REPORT INFORMATION
  Report Type: 
  Country: None (occurrence: None)
  Receive Date: 20071024
  Receipt Date: 20071016
  Transmission Date: 20080405
  Serious: Yes (Hospitalization)
  Sender: FDA-Public Use
  Company Number: 2007SP015854

PATIENT
  Age: 52 Year
  Sex: Male

DRUGS (2)
  1. PEG-INTRON [Suspect]
     Indication: HEPATITIS C
     Dosage: ;SC
     Route: 058
     Dates: start: 20070309
  2. RIBAVIRIN [Suspect]
     Indication: HEPATITIS C
     Dosage: ;PO
     Route: 048
     Dates: start: 20070309

REACTIONS (17)
  - ANAEMIA [None]
  - ASTHENIA [None]
  - CARDIAC MURMUR [None]
  - CHAPPED LIPS [None]
  - CRYING [None]
  - DEHYDRATION [None]
  - DEPRESSION [None]
  - FATIGUE [None]
  - HEADACHE [None]
  - HEPATIC ENZYME INCREASED [None]
  - HYPOTENSION [None]
  - INSOMNIA [None]
  - LIP DRY [None]
  - LIP SWELLING [None]
  - MUSCLE DISORDER [None]
  - MUSCLE SPASMS [None]
  - MYALGIA [None]
